FAERS Safety Report 9641921 (Version 2)
Quarter: 2013Q4

REPORT INFORMATION
  Report Type: Spontaneous
  Country: US (occurrence: US)
  Receive Date: 20131023
  Receipt Date: 20131023
  Transmission Date: 20140711
  Serious: Yes (Other)
  Sender: FDA-Public Use
  Company Number: CHPA2013US015585

PATIENT
  Sex: Female

DRUGS (2)
  1. EXCEDRIN ES BACK + BODY [Suspect]
     Indication: PAIN
     Dosage: 1 DF, PRN
     Route: 048
  2. EXCEDRIN MIGRAINE [Suspect]
     Indication: MIGRAINE

REACTIONS (3)
  - Cataract [Recovered/Resolved]
  - Expired drug administered [Unknown]
  - Incorrect dose administered [Unknown]
